FAERS Safety Report 8273582-X (Version None)
Quarter: 2012Q2

REPORT INFORMATION
  Report Type: 
  Country: None (occurrence: None)
  Receive Date: 20120411
  Receipt Date: 20120117
  Transmission Date: 20120825
  Serious: No
  Sender: FDA-Public Use
  Company Number: US-TEVA-318089USA

PATIENT
  Sex: Female

DRUGS (2)
  1. NUVIGIL [Suspect]
     Indication: SLEEP DISORDER
     Route: 048
     Dates: start: 20120101
  2. NUVIGIL [Suspect]
     Indication: FATIGUE

REACTIONS (1)
  - FATIGUE [None]
